FAERS Safety Report 8949686 (Version 2)
Quarter: 2013Q2

REPORT INFORMATION
  Report Type: Report from Study
  Country: JP (occurrence: JP)
  Receive Date: 20121206
  Receipt Date: 20130618
  Transmission Date: 20140414
  Serious: Yes (Other)
  Sender: FDA-Public Use
  Company Number: JP-VERTEX PHARMACEUTICALS INC.-2012-025664

PATIENT
  Age: 61 Year
  Sex: Male

DRUGS (14)
  1. VX-950 (TELAPREVIR) [Suspect]
     Indication: CHRONIC HEPATITIS C
     Dosage: 1500 MG, QD
     Route: 048
     Dates: start: 20120828, end: 20121121
  2. REBETOL [Suspect]
     Indication: CHRONIC HEPATITIS C
     Dosage: 600 MG, QD
     Route: 048
     Dates: start: 20120828, end: 20120917
  3. REBETOL [Suspect]
     Dosage: 400 MG, QD
     Route: 048
     Dates: start: 20120918, end: 20121001
  4. REBETOL [Suspect]
     Dosage: 200 MG, QD
     Route: 048
     Dates: start: 20121002, end: 20121024
  5. REBETOL [Suspect]
     Dosage: 400 MG, QD
     Route: 048
     Dates: start: 20121025, end: 20121031
  6. REBETOL [Suspect]
     Dosage: 200 MG, QD
     Route: 048
     Dates: start: 20121101
  7. PEGINTRON [Suspect]
     Indication: CHRONIC HEPATITIS C
     Dosage: 1.49 ?G/KG, QW
     Route: 058
     Dates: start: 20120828, end: 20120911
  8. PEGINTRON [Suspect]
     Dosage: 0.56 ?G/KG, QW
     Route: 058
     Dates: start: 20120918, end: 20120918
  9. PEGINTRON [Suspect]
     Dosage: 1.12 ?G/KG, QW
     Route: 058
     Dates: start: 20120925, end: 20120925
  10. PEGINTRON [Suspect]
     Dosage: 1.49 ?G/KG, QW
     Route: 058
     Dates: start: 20121002, end: 20121017
  11. PEGINTRON [Suspect]
     Dosage: 0.75 ?G/KG, QW
     Route: 058
     Dates: start: 20121025, end: 20121025
  12. PEGINTRON [Suspect]
     Dosage: 1.12 ?G/KG, QW
     Route: 058
     Dates: start: 20121101, end: 20121101
  13. PEGINTRON [Suspect]
     Dosage: 1.49 ?G/KG, QW
     Route: 058
     Dates: start: 20121108, end: 20121115
  14. PEGINTRON [Suspect]
     Dosage: 0.75 ?G/KG, QW
     Route: 058
     Dates: start: 20121122

REACTIONS (2)
  - White blood cell count decreased [Recovered/Resolved]
  - Neutrophil count decreased [Recovered/Resolved]
